FAERS Safety Report 6403415-5 (Version None)
Quarter: 2009Q4

REPORT INFORMATION
  Report Type: 
  Country: None (occurrence: None)
  Receive Date: 20091016
  Receipt Date: 20090925
  Transmission Date: 20100525
  Serious: Yes (Death, Other)
  Sender: FDA-Public Use
  Company Number: GB-BAXTER-2009BH013947

PATIENT
  Age: 42 Year
  Sex: Male
  Weight: 62 kg

DRUGS (8)
  1. HUMAN ALBUMIN IMMUNO 5% [Suspect]
     Indication: HYPOALBUMINAEMIA
     Route: 042
     Dates: start: 20090908, end: 20090908
  2. THIAMINE HCL [Concomitant]
     Indication: LIVER DISORDER
     Route: 048
     Dates: start: 20090823
  3. OMEPRAZOLE [Concomitant]
     Indication: LIVER DISORDER
     Route: 048
     Dates: start: 20090823
  4. VITAMIN B COMPLEX CAP [Concomitant]
     Indication: LIVER DISORDER
     Route: 048
     Dates: start: 20090823
  5. LACTULOSE [Concomitant]
     Indication: LIVER DISORDER
     Route: 048
     Dates: start: 20090823
  6. FOLIC ACID [Concomitant]
     Indication: LIVER DISORDER
     Route: 048
     Dates: start: 20090825
  7. MULTI-VITAMINS [Concomitant]
     Indication: LIVER DISORDER
     Route: 048
     Dates: start: 20090828
  8. CIPROFLOXACIN HYDROCHLORIDE [Concomitant]
     Route: 048
     Dates: start: 20090907

REACTIONS (12)
  - ALCOHOLIC LIVER DISEASE [None]
  - BODY TEMPERATURE DECREASED [None]
  - CHILLS [None]
  - CHOKING [None]
  - HAEMODYNAMIC INSTABILITY [None]
  - HAEMORRHAGE [None]
  - LYMPHOCYTE COUNT DECREASED [None]
  - METABOLIC ACIDOSIS [None]
  - NEUTROPHIL COUNT INCREASED [None]
  - PLATELET COUNT DECREASED [None]
  - RED BLOOD CELL COUNT DECREASED [None]
  - SEPSIS [None]
